FAERS Safety Report 19298484 (Version 1)
Quarter: 2021Q2

REPORT INFORMATION
  Report Type: Other
  Country: US (occurrence: US)
  Receive Date: 20210525
  Receipt Date: 20210525
  Transmission Date: 20210717
  Serious: Yes (Other)
  Sender: FDA-Public Use
  Company Number: US-INTERCEPT-PM2021001195

PATIENT
  Age: 52 Year
  Sex: Female
  Weight: 80 kg

DRUGS (6)
  1. TRAMADOL. [Concomitant]
     Active Substance: TRAMADOL
  2. URSODIOL. [Concomitant]
     Active Substance: URSODIOL
     Dosage: UNK
  3. HYDROCHLOROTHIAZIDE;TRIAMTERENE [Concomitant]
     Active Substance: HYDROCHLOROTHIAZIDE\TRIAMTERENE
  4. OCALIVA [Suspect]
     Active Substance: OBETICHOLIC ACID
     Indication: PRIMARY BILIARY CHOLANGITIS
     Dosage: 5 MG, QD
     Route: 048
     Dates: start: 20190509, end: 20210112
  5. CITALOPRAM [Concomitant]
     Active Substance: CITALOPRAM HYDROBROMIDE
  6. OCALIVA [Suspect]
     Active Substance: OBETICHOLIC ACID
     Dosage: 5 MILLIGRAM, QD
     Route: 048
     Dates: start: 20210217

REACTIONS (13)
  - Low density lipoprotein abnormal [Unknown]
  - Vitamin D abnormal [Unknown]
  - Abdominal pain upper [Unknown]
  - Therapy interrupted [Recovered/Resolved]
  - Hepatic fibrosis [Unknown]
  - Aspartate aminotransferase abnormal [Unknown]
  - Fatigue [Unknown]
  - Hepatic cyst [Unknown]
  - Arthralgia [Unknown]
  - Nausea [Unknown]
  - Blood cholesterol abnormal [Unknown]
  - Obesity [Recovering/Resolving]
  - Alanine aminotransferase abnormal [Unknown]

NARRATIVE: CASE EVENT DATE: 20210113
